FAERS Safety Report 6081726-3 (Version None)
Quarter: 2009Q1

REPORT INFORMATION
  Report Type: 
  Country: None (occurrence: None)
  Receive Date: 20090218
  Receipt Date: 20090212
  Transmission Date: 20090719
  Serious: Yes (Disabling)
  Sender: FDA-Public Use
  Company Number: FR-ABBOTT-09P-056-0499425-00

PATIENT
  Age: 23 Year
  Sex: Male
  Weight: 96 kg

DRUGS (2)
  1. HUMIRA [Suspect]
     Indication: PSORIASIS
     Route: 058
     Dates: start: 20090117
  2. ANTITUBERCULOSIS [Concomitant]
     Indication: ANTIBIOTIC PROPHYLAXIS

REACTIONS (8)
  - INJECTION SITE INFLAMMATION [None]
  - INJECTION SITE NODULE [None]
  - INJECTION SITE PAIN [None]
  - INJECTION SITE REACTION [None]
  - MALAISE [None]
  - MUSCULAR WEAKNESS [None]
  - VERTIGO [None]
  - VISUAL IMPAIRMENT [None]
